FAERS Safety Report 4674947-5 (Version None)
Quarter: 2005Q2

REPORT INFORMATION
  Report Type: 
  Country: None (occurrence: None)
  Receive Date: 20050526
  Receipt Date: 20050506
  Transmission Date: 20051028
  Serious: Yes (Death)
  Sender: FDA-Public Use
  Company Number: 1809

PATIENT
  Age: 57 Year
  Sex: Female
  Weight: 79.8331 kg

DRUGS (14)
  1. AVINZA [Suspect]
     Dosage: 30 MG QD PO
     Route: 048
     Dates: start: 20050502, end: 20050502
  2. AVINZA [Suspect]
     Dosage: 60 MG QD PO
     Route: 048
     Dates: start: 20050503
  3. BEVACIZUMAB [Concomitant]
  4. CALCIUM (INTRAVENOUS) [Concomitant]
  5. DILTIAZEM [Concomitant]
  6. DIPHENHYDRAMINE/LIDOCAINE/ALUMINA/MAGNESIA MOUTHWASH [Concomitant]
  7. 5-FLUOROURAICL [Concomitant]
  8. GRANISETRON [Concomitant]
  9. LEUCOVORIN CALCIUM [Concomitant]
  10. MAGNESIUM (INTRAVENOUS) [Concomitant]
  11. OXALIPLATIN [Concomitant]
  12. PALONOSETRON [Concomitant]
  13. PROPRANOL [Concomitant]
  14. TERAZOSIN [Concomitant]

REACTIONS (3)
  - AORTIC THROMBOSIS [None]
  - CEREBROVASCULAR ACCIDENT [None]
  - HYPERCOAGULATION [None]
